FAERS Safety Report 14290788 (Version 5)
Quarter: 2018Q1

REPORT INFORMATION
  Report Type: Spontaneous
  Country: US (occurrence: US)
  Receive Date: 20171215
  Receipt Date: 20180212
  Transmission Date: 20180509
  Serious: Yes (Hospitalization, Other)
  Sender: FDA-Public Use
  Company Number: US-GLAXOSMITHKLINE-US2017GSK193509

PATIENT
  Age: 67 Year
  Sex: Female

DRUGS (3)
  1. FLOLAN [Suspect]
     Active Substance: EPOPROSTENOL SODIUM
     Indication: PULMONARY ARTERIAL HYPERTENSION
     Dosage: 17 DF, CO
     Dates: start: 20061004
  2. FLOLAN [Suspect]
     Active Substance: EPOPROSTENOL SODIUM
     Indication: PULMONARY ARTERIAL HYPERTENSION
     Dosage: UNK
     Dates: start: 20161026
  3. REVATIO [Concomitant]
     Active Substance: SILDENAFIL CITRATE
     Indication: PRODUCT USED FOR UNKNOWN INDICATION

REACTIONS (9)
  - Influenza [Unknown]
  - Device related infection [Unknown]
  - Device leakage [Unknown]
  - Pallor [Unknown]
  - Complication associated with device [Unknown]
  - Hospitalisation [Unknown]
  - Pneumonia [Unknown]
  - Drug dose omission [Unknown]
  - Hypotension [Unknown]

NARRATIVE: CASE EVENT DATE: 20180103
